FAERS Safety Report 5484905-9 (Version None)
Quarter: 2007Q4

REPORT INFORMATION
  Report Type: 
  Country: None (occurrence: None)
  Receive Date: 20071011
  Receipt Date: 20071003
  Transmission Date: 20080405
  Serious: Yes (Death)
  Sender: FDA-Public Use
  Company Number: S07-USA-03135-01

PATIENT
  Age: 32 Year
  Sex: Male
  Weight: 88.4514 kg

DRUGS (4)
  1. LEXAPRO [Suspect]
     Indication: DEPRESSION
     Dosage: 20 MG QD PO
     Route: 048
     Dates: start: 20040201, end: 20070509
  2. LUNESTA [Suspect]
     Indication: INSOMNIA
  3. EFFEXOR [Concomitant]
  4. ZYRTEC [Concomitant]

REACTIONS (2)
  - ASPHYXIA [None]
  - COMPLETED SUICIDE [None]
